FAERS Safety Report 17715779 (Version 2)
Quarter: 2020Q2

REPORT INFORMATION
  Report Type: Spontaneous
  Country: RU (occurrence: RU)
  Receive Date: 20200427
  Receipt Date: 20200512
  Transmission Date: 20200714
  Serious: Yes (Life-Threatening, Hospitalization, Other)
  Sender: FDA-Public Use
  Company Number: RU-BAXTER-2020BAX008977

PATIENT
  Age: 13 Year
  Sex: Female

DRUGS (4)
  1. HOLOKSAN 2 G (IFOSFAMIDE) [Suspect]
     Active Substance: IFOSFAMIDE
     Indication: EWING^S SARCOMA
     Dosage: UNK - ONGOING, 4 CHEMOTHERAPY CYCLES
     Route: 065
  2. ETOPOSIDE. [Suspect]
     Active Substance: ETOPOSIDE
     Indication: EWING^S SARCOMA
     Dosage: UNK - ONGOING, 4 CHEMOTHERAPY CYCLES
     Route: 065
  3. DOXIL [Suspect]
     Active Substance: DOXORUBICIN HYDROCHLORIDE
     Indication: EWING^S SARCOMA
     Dosage: CYCLICAL
     Route: 065
  4. VINCRISTINE [Suspect]
     Active Substance: VINCRISTINE
     Indication: EWING^S SARCOMA
     Dosage: 4 CHEMOTHERAPY CYCLES
     Route: 065

REACTIONS (10)
  - Aplastic anaemia [Recovered/Resolved]
  - Febrile neutropenia [Unknown]
  - Oesophageal candidiasis [Recovered/Resolved]
  - Enterocolitis [Unknown]
  - Stomatitis [Unknown]
  - Oesophagitis [Unknown]
  - Bone marrow failure [Recovered/Resolved]
  - Bone marrow failure [Unknown]
  - Agranulocytosis [Unknown]
  - Neutropenic colitis [Recovered/Resolved]
